FAERS Safety Report 20608526 (Version 1)
Quarter: 2022Q1

REPORT INFORMATION
  Report Type: Spontaneous
  Country: US (occurrence: None)
  Receive Date: 20220317
  Receipt Date: 20220317
  Transmission Date: 20220423
  Serious: Yes (Hospitalization)
  Sender: FDA-Public Use
  Company Number: None

PATIENT
  Age: 90 Year
  Sex: Male
  Weight: 72.57 kg

DRUGS (16)
  1. ABIRATERONE [Suspect]
     Active Substance: ABIRATERONE
     Indication: Prostate cancer
     Dosage: FREQUENCY : DAILY;?
     Route: 048
  2. LEVOTHYROXINE [Concomitant]
     Active Substance: LEVOTHYROXINE
  3. HYDRALAZINE [Concomitant]
     Active Substance: HYDRALAZINE HYDROCHLORIDE
  4. POTASSIUM [Concomitant]
     Active Substance: POTASSIUM
  5. ATORVASTATIN [Concomitant]
  6. LOSARTAN [Concomitant]
     Active Substance: LOSARTAN
  7. PREDNISONE [Concomitant]
     Active Substance: PREDNISONE
  8. FUROSEMIDIE [Concomitant]
  9. FORMULA 3 [Concomitant]
     Active Substance: TOLNAFTATE
  10. OXYCODONE [Concomitant]
  11. SEA MIST [Concomitant]
  12. MAGNESIUM [Concomitant]
     Active Substance: MAGNESIUM
  13. ELGARD [Concomitant]
  14. VITAMIHN B12 [Concomitant]
  15. CALCIUM\CHOLECALCIFEROL [Concomitant]
     Active Substance: CALCIUM\CHOLECALCIFEROL
  16. DOCUSATE [Concomitant]

REACTIONS (3)
  - Hypotension [None]
  - Urinary tract infection [None]
  - Therapy interrupted [None]

NARRATIVE: CASE EVENT DATE: 20220314
